FAERS Safety Report 22318375 (Version 1)
Quarter: 2023Q2

REPORT INFORMATION
  Report Type: Spontaneous
  Country: US (occurrence: US)
  Receive Date: 20230515
  Receipt Date: 20230515
  Transmission Date: 20230721
  Serious: Yes (Death, Life-Threatening, Hospitalization)
  Sender: FDA-Public Use
  Company Number: US-Vifor (International) Inc.-VIT-2023-03431

PATIENT
  Age: 63 Year
  Sex: Male
  Weight: 123.5 kg

DRUGS (2)
  1. MIRCERA [Suspect]
     Active Substance: METHOXY POLYETHYLENE GLYCOL-EPOETIN BETA
     Indication: Nephrogenic anaemia
     Route: 040
     Dates: start: 20230427, end: 20230427
  2. HECTOROL [Concomitant]
     Active Substance: DOXERCALCIFEROL
     Dates: start: 20230427, end: 20230427

REACTIONS (1)
  - Unresponsive to stimuli [Fatal]

NARRATIVE: CASE EVENT DATE: 20230427
